FAERS Safety Report 13024694 (Version 1)
Quarter: 2016Q4

REPORT INFORMATION
  Report Type: Spontaneous
  Country: US (occurrence: US)
  Receive Date: 20161213
  Receipt Date: 20161213
  Transmission Date: 20170207
  Serious: Yes (Death)
  Sender: FDA-Public Use
  Company Number: US-ROCHE-1761869

PATIENT
  Sex: Female

DRUGS (3)
  1. ACTIVASE [Suspect]
     Active Substance: ALTEPLASE
     Indication: ISCHAEMIC STROKE
     Route: 065
  2. CARDENE [Concomitant]
     Active Substance: NICARDIPINE HYDROCHLORIDE
  3. LABETALOL [Concomitant]
     Active Substance: LABETALOL\LABETALOL HYDROCHLORIDE
     Route: 065

REACTIONS (1)
  - Haemorrhage intracranial [Fatal]
